FAERS Safety Report 4927750-2 (Version None)
Quarter: 2006Q1

REPORT INFORMATION
  Report Type: 
  Country: None (occurrence: None)
  Receive Date: 20060222
  Receipt Date: 20060210
  Transmission Date: 20060701
  Serious: Yes (Hospitalization)
  Sender: FDA-Public Use
  Company Number: 2006020592

PATIENT
  Age: 79 Year
  Sex: Male
  Weight: 90.7194 kg

DRUGS (3)
  1. VISINE PURE TEARS (GLYCERIN, POLYETHYLENE GLYCOL, HYDROXYPROPYLMETHYLC [Suspect]
     Indication: DRY EYE
     Dosage: 1-2 DROPS EACH EYE ONCE DAILY AS NEEDED, OPHTHALMIC
     Route: 047
     Dates: start: 20060101, end: 20060208
  2. ATORVASTATIN CALCIUM [Concomitant]
  3. BUMETANIDE [Concomitant]

REACTIONS (1)
  - CEREBROVASCULAR ACCIDENT [None]
